FAERS Safety Report 7024887-1 (Version None)
Quarter: 2010Q4

REPORT INFORMATION
  Report Type: 
  Country: None (occurrence: None)
  Receive Date: 20101001
  Receipt Date: 20100924
  Transmission Date: 20110411
  Serious: Yes (Hospitalization, Other)
  Sender: FDA-Public Use
  Company Number: US-MERCK-1007USA01976

PATIENT
  Age: 90 Year
  Sex: Female

DRUGS (4)
  1. FOSAMAX [Suspect]
     Indication: OSTEOPOROSIS
     Route: 048
     Dates: start: 20010406, end: 20070716
  2. NORVASC [Concomitant]
     Route: 065
     Dates: start: 19900101
  3. BENICAR [Concomitant]
     Route: 065
     Dates: start: 19900101
  4. HYDROCHLOROTHIAZIDE [Concomitant]
     Route: 065
     Dates: start: 19900101

REACTIONS (5)
  - DENTAL CARIES [None]
  - EAR DISORDER [None]
  - IMPAIRED HEALING [None]
  - OSTEONECROSIS OF JAW [None]
  - TOOTH DISORDER [None]
